FAERS Safety Report 17597902 (Version 1)
Quarter: 2020Q1

REPORT INFORMATION
  Report Type: Spontaneous
  Country: US (occurrence: US)
  Receive Date: 20200326
  Receipt Date: 20200326
  Transmission Date: 20200409
  Serious: Yes (Hospitalization)
  Sender: FDA-Public Use
  Company Number: None

PATIENT
  Age: 16 Year
  Sex: Male

DRUGS (7)
  1. STELARA [Suspect]
     Active Substance: USTEKINUMAB
     Indication: CROHN^S DISEASE
     Dosage: ?          OTHER DOSE:1 SYR;OTHER FREQUENCY:Q8WKS;?
     Route: 058
  2. METHOCARBAM [Concomitant]
     Active Substance: METHOCARBAMOL
  3. FOLIC ACID. [Concomitant]
     Active Substance: FOLIC ACID
  4. PREDNISONE. [Concomitant]
     Active Substance: PREDNISONE
  5. BUDESONIDE. [Concomitant]
     Active Substance: BUDESONIDE
  6. METHOTHREXATE [Concomitant]
     Active Substance: METHOTREXATE SODIUM
  7. DULOXETINE. [Concomitant]
     Active Substance: DULOXETINE

REACTIONS (2)
  - Off label use [None]
  - Crohn^s disease [None]

NARRATIVE: CASE EVENT DATE: 20200302
